FAERS Safety Report 7971994-2 (Version None)
Quarter: 2011Q4

REPORT INFORMATION
  Report Type: 
  Country: None (occurrence: None)
  Receive Date: 20111212
  Receipt Date: 20111201
  Transmission Date: 20120403
  Serious: Yes (Disabling)
  Sender: FDA-Public Use
  Company Number: JP-ALLERGAN-1115857US

PATIENT
  Age: 82 Year
  Sex: Female

DRUGS (5)
  1. CARTEOLOL HYDROCHLORIDE [Concomitant]
     Dosage: UNK
     Route: 047
     Dates: start: 20100825
  2. LUMIGAN [Suspect]
     Indication: GLAUCOMA
     Dosage: 1 GTT, QPM
     Route: 047
     Dates: start: 20100623
  3. TAFLUPROST [Concomitant]
     Dosage: UNK
     Route: 047
     Dates: start: 20100101, end: 20100601
  4. LEVOFLOXACIN [Concomitant]
     Dosage: UNK
     Route: 047
     Dates: start: 20100414
  5. RINDERON-A [Concomitant]
     Dosage: UNK
     Route: 047
     Dates: start: 20100414

REACTIONS (2)
  - RETINAL VASCULAR DISORDER [None]
  - VISUAL ACUITY REDUCED [None]
